FAERS Safety Report 9861042 (Version 1)
Quarter: 2014Q1

REPORT INFORMATION
  Report Type: Spontaneous
  Country: US (occurrence: US)
  Receive Date: 20140202
  Receipt Date: 20140202
  Transmission Date: 20141002
  Serious: No
  Sender: FDA-Public Use
  Company Number: US-ALLERGAN-1302936US

PATIENT
  Age: 29 Year
  Sex: Female

DRUGS (4)
  1. BOTOX COSMETIC [Suspect]
     Indication: SKIN WRINKLING
     Dosage: 22 UNITS, SINGLE
     Route: 030
     Dates: start: 20130123, end: 20130123
  2. BOTOX COSMETIC [Suspect]
     Dosage: 6 UNITS, SINGLE
     Route: 030
     Dates: start: 20130205, end: 20130205
  3. ORTHO -TRI- CYCLEN [Concomitant]
     Indication: PRODUCT USED FOR UNKNOWN INDICATION
  4. BACTRIM                            /00086101/ [Concomitant]
     Indication: PRODUCT USED FOR UNKNOWN INDICATION

REACTIONS (1)
  - Injection site rash [Unknown]
